FAERS Safety Report 5565044-5 (Version None)
Quarter: 2007Q4

REPORT INFORMATION
  Report Type: 
  Country: None (occurrence: None)
  Receive Date: 20071212
  Receipt Date: 20071204
  Transmission Date: 20080405
  Serious: Yes (Disabling)
  Sender: FDA-Public Use
  Company Number: E2020-01896-SPO-CA

PATIENT
  Age: 80 Year
  Sex: Female
  Weight: 61 kg

DRUGS (7)
  1. ARICEPT [Suspect]
     Indication: CHOLINESTERASE INHIBITION
     Dosage: 10 MG, 1 IN 1 D, ORAL; 5 MG, 1 IN 1 D, ORAL
     Route: 048
     Dates: start: 20060330, end: 20071011
  2. ARICEPT [Suspect]
     Indication: CHOLINESTERASE INHIBITION
     Dosage: 10 MG, 1 IN 1 D, ORAL; 5 MG, 1 IN 1 D, ORAL
     Route: 048
     Dates: start: 20071012, end: 20071119
  3. TENORMIN [Concomitant]
  4. ALTACE [Concomitant]
  5. ASPIRIN [Concomitant]
  6. ATASOL (PARACETAMOL) [Concomitant]
  7. SERAX [Concomitant]

REACTIONS (2)
  - COGWHEEL RIGIDITY [None]
  - TARDIVE DYSKINESIA [None]
